FAERS Safety Report 21952494 (Version 1)
Quarter: 2023Q1

REPORT INFORMATION
  Report Type: Spontaneous
  Country: TH (occurrence: TH)
  Receive Date: 20230203
  Receipt Date: 20230203
  Transmission Date: 20230417
  Serious: Yes (Death)
  Sender: FDA-Public Use
  Company Number: TH-009507513-2302THA001180

PATIENT
  Age: 36 Year
  Sex: Female

DRUGS (2)
  1. PEMBROLIZUMAB [Suspect]
     Active Substance: PEMBROLIZUMAB
     Indication: Small cell lung cancer
     Dosage: 200 MILLIGRAM
     Route: 042
     Dates: start: 20210909, end: 20211128
  2. LENVATINIB MESYLATE [Suspect]
     Active Substance: LENVATINIB MESYLATE
     Indication: Small cell lung cancer
     Dosage: TOTAL DAILY DOSE: 4 MG
     Route: 048

REACTIONS (6)
  - Feeding disorder [Fatal]
  - Infection [Recovered/Resolved]
  - Asthenia [Unknown]
  - Oral pain [Not Recovered/Not Resolved]
  - Inappropriate schedule of product administration [Unknown]
  - Product use issue [Unknown]

NARRATIVE: CASE EVENT DATE: 20211019
